FAERS Safety Report 16500414 (Version 3)
Quarter: 2019Q3

REPORT INFORMATION
  Report Type: Spontaneous
  Country: US (occurrence: US)
  Receive Date: 20190701
  Receipt Date: 20190819
  Transmission Date: 20191004
  Serious: No
  Sender: FDA-Public Use
  Company Number: US-009507513-1906USA010979

PATIENT
  Sex: Female

DRUGS (18)
  1. TRAZODONE HYDROCHLORIDE. [Concomitant]
     Active Substance: TRAZODONE HYDROCHLORIDE
     Dosage: UNK
  2. ACITRETIN. [Concomitant]
     Active Substance: ACITRETIN
     Dosage: UNK
  3. FLUTICASONE. [Concomitant]
     Active Substance: FLUTICASONE
     Dosage: SPRAY
  4. LOSARTAN POTASSIUM. [Concomitant]
     Active Substance: LOSARTAN POTASSIUM
     Dosage: UNK
  5. DOXYCYCLINE HYCLATE. [Concomitant]
     Active Substance: DOXYCYCLINE HYCLATE
     Dosage: UNK
  6. INTRON A [Suspect]
     Active Substance: INTERFERON ALFA-2B
     Indication: CARCINOID TUMOUR
     Dosage: STRENGTH: 18 MILLION UNITS (MU); 0.25 MILLILITER, THREE TIMES PER WEEK
     Route: 058
     Dates: start: 20190606
  7. GLIMEPIRIDE. [Concomitant]
     Active Substance: GLIMEPIRIDE
     Dosage: UNK
  8. HYDROCHLOROT [Concomitant]
     Active Substance: HYDROCHLOROTHIAZIDE
     Dosage: UNK
  9. VICTOZA [Concomitant]
     Active Substance: LIRAGLUTIDE
  10. INVOKANA [Concomitant]
     Active Substance: CANAGLIFLOZIN
     Dosage: UNK
  11. METFORMIN [Concomitant]
     Active Substance: METFORMIN HYDROCHLORIDE
     Dosage: UNK
  12. TRESIBA [Concomitant]
     Active Substance: INSULIN DEGLUDEC
     Dosage: UNK
  13. VALSARTAN HCT SANDOZ [Concomitant]
     Active Substance: HYDROCHLOROTHIAZIDE\VALSARTAN
     Dosage: UNK
  14. INTRON A [Suspect]
     Active Substance: INTERFERON ALFA-2B
     Indication: NEOPLASM MALIGNANT
  15. LISINOPRIL. [Concomitant]
     Active Substance: LISINOPRIL
     Dosage: UNK
  16. VENLAFAXINE HYDROCHLORIDE. [Concomitant]
     Active Substance: VENLAFAXINE HYDROCHLORIDE
  17. PRAVASTATIN. [Concomitant]
     Active Substance: PRAVASTATIN
     Dosage: UNK
  18. METRONIDAZOLE. [Concomitant]
     Active Substance: METRONIDAZOLE
     Dosage: UNK

REACTIONS (2)
  - Headache [Unknown]
  - Influenza like illness [Unknown]

NARRATIVE: CASE EVENT DATE: 2019
